FAERS Safety Report 6146838-4 (Version None)
Quarter: 2009Q2

REPORT INFORMATION
  Report Type: 
  Country: None (occurrence: None)
  Receive Date: 20090407
  Receipt Date: 20090325
  Transmission Date: 20091009
  Serious: Yes (Death)
  Sender: FDA-Public Use
  Company Number: JP-ABBOTT-09P-087-0562595-00

PATIENT
  Age: 62 Year
  Sex: Male

DRUGS (8)
  1. LEUPLIN SR FOR INJECTION KIT 11.25 MG [Suspect]
     Indication: PROSTATE CANCER STAGE IV
     Route: 058
     Dates: start: 20060627, end: 20070828
  2. LEUPLIN SR FOR INJECTION KIT 11.25 MG [Suspect]
     Dates: start: 20050908, end: 20060530
  3. CASODEX [Concomitant]
     Indication: PROSTATE CANCER STAGE IV
     Route: 048
     Dates: start: 20060530, end: 20060918
  4. FLUTAMIDE [Concomitant]
     Indication: PROSTATE CANCER STAGE IV
     Route: 048
     Dates: start: 20060919, end: 20061211
  5. ESTRAMUSTINE PHOSPHATE SODIUM [Concomitant]
     Indication: PROSTATE CANCER STAGE IV
     Route: 048
     Dates: start: 20061212, end: 20070909
  6. DECADRON [Concomitant]
     Indication: PROSTATE CANCER STAGE IV
     Route: 048
     Dates: start: 20070410, end: 20070909
  7. TAMSULOSIN HYDROCHLORIDE [Concomitant]
     Indication: BENIGN PROSTATIC HYPERPLASIA
     Route: 048
     Dates: end: 20070907
  8. HALCION [Concomitant]
     Indication: INSOMNIA
     Route: 048
     Dates: end: 20070907

REACTIONS (1)
  - METASTASES TO LIVER [None]
